FAERS Safety Report 14861018 (Version 3)
Quarter: 2018Q4

REPORT INFORMATION
  Report Type: Spontaneous
  Country: GB (occurrence: GB)
  Receive Date: 20180508
  Receipt Date: 20181214
  Transmission Date: 20190204
  Serious: Yes (Hospitalization)
  Sender: FDA-Public Use
  Company Number: GB-IPSEN BIOPHARMACEUTICALS, INC.-2018-06234

PATIENT
  Age: 50 Year
  Sex: Female
  Weight: 71.6 kg

DRUGS (10)
  1. DYSPORT [Suspect]
     Active Substance: ABOBOTULINUMTOXINA
     Indication: MUSCLE SPASTICITY
     Dosage: 1300 UNITS
     Route: 030
     Dates: start: 20180207, end: 20180207
  2. DYSPORT [Suspect]
     Active Substance: ABOBOTULINUMTOXINA
     Indication: MUSCLE SPASTICITY
  3. PARACETAMOL [Concomitant]
     Active Substance: ACETAMINOPHEN
  4. LIDOCAINE. [Concomitant]
     Active Substance: LIDOCAINE
  5. RILUZOLE. [Concomitant]
     Active Substance: RILUZOLE
  6. SERTRALINE [Concomitant]
     Active Substance: SERTRALINE HYDROCHLORIDE
  7. IBUPROFEN. [Concomitant]
     Active Substance: IBUPROFEN
  8. LONGTEC [Concomitant]
     Active Substance: OXYCODONE HYDROCHLORIDE
  9. DYSPORT [Suspect]
     Active Substance: ABOBOTULINUMTOXINA
     Indication: MUSCLE SPASTICITY
  10. OXYCODONE HYDROCHLORIDE. [Concomitant]
     Active Substance: OXYCODONE HYDROCHLORIDE

REACTIONS (8)
  - Pain in extremity [Recovering/Resolving]
  - Restless legs syndrome [Recovering/Resolving]
  - Choking [Recovering/Resolving]
  - Dysphagia [Recovering/Resolving]
  - Chronic respiratory failure [Recovering/Resolving]
  - Condition aggravated [Recovering/Resolving]
  - Dyspnoea [Recovering/Resolving]
  - Neuromuscular toxicity [Recovering/Resolving]

NARRATIVE: CASE EVENT DATE: 201802
